FAERS Safety Report 5963373-4 (Version None)
Quarter: 2008Q4

REPORT INFORMATION
  Report Type: 
  Country: None (occurrence: None)
  Receive Date: 20081124
  Receipt Date: 20081118
  Transmission Date: 20090506
  Serious: Yes (Other)
  Sender: FDA-Public Use
  Company Number: B0540040A

PATIENT
  Age: 18 Year
  Sex: Female
  Weight: 50 kg

DRUGS (1)
  1. ZELITREX [Suspect]
     Indication: ERYTHEMA MULTIFORME
     Dosage: 1TAB PER DAY
     Route: 048
     Dates: start: 20080301, end: 20081001

REACTIONS (3)
  - FEELING ABNORMAL [None]
  - HALLUCINATION [None]
  - WRONG TECHNIQUE IN DRUG USAGE PROCESS [None]
